FAERS Safety Report 5787265-9 (Version None)
Quarter: 2008Q2

REPORT INFORMATION
  Report Type: 
  Country: None (occurrence: None)
  Receive Date: 20080625
  Receipt Date: 20070921
  Transmission Date: 20081010
  Serious: No
  Sender: FDA-Public Use
  Company Number: US-ASTRAZENECA-2007UW22210

PATIENT
  Age: 87 Year
  Sex: Female

DRUGS (2)
  1. PULMICORT FLEXHALER [Suspect]
     Indication: DYSPNOEA
     Dosage: ONE PUFF BID
     Route: 055
     Dates: start: 20070912
  2. VENTOLIN [Concomitant]

REACTIONS (2)
  - PETECHIAE [None]
  - RASH PRURITIC [None]
